FAERS Safety Report 7461454-X (Version None)
Quarter: 2011Q2

REPORT INFORMATION
  Report Type: 
  Country: None (occurrence: None)
  Receive Date: 20110506
  Receipt Date: 20110502
  Transmission Date: 20111010
  Serious: No
  Sender: FDA-Public Use
  Company Number: US-PFIZER INC-2011094461

PATIENT
  Sex: Female
  Weight: 58.503 kg

DRUGS (7)
  1. SYNTHROID [Concomitant]
     Dosage: UNK
  2. MONTELUKAST [Concomitant]
     Dosage: UNK
  3. EFFEXOR [Concomitant]
     Dosage: UNK
  4. PREDNISONE [Concomitant]
     Dosage: UNK
  5. VITAMIN D [Concomitant]
     Dosage: UNK
  6. EXEMESTANE [Suspect]
     Indication: BREAST CANCER FEMALE
     Dosage: UNK
  7. HYDROCODONE [Concomitant]
     Dosage: UNK

REACTIONS (3)
  - FEELING ABNORMAL [None]
  - PAIN [None]
  - DIARRHOEA [None]
